FAERS Safety Report 14903746 (Version 1)
Quarter: 2018Q2

REPORT INFORMATION
  Report Type: Other
  Country: US (occurrence: US)
  Receive Date: 20180516
  Receipt Date: 20180516
  Transmission Date: 20180711
  Serious: Yes (Other)
  Sender: FDA-Public Use
  Company Number: US-ALSI-201800325

PATIENT
  Age: 5 Year
  Sex: Female

DRUGS (2)
  1. NITROUS OXIDE. [Suspect]
     Active Substance: NITROUS OXIDE
     Indication: INDUCTION OF ANAESTHESIA
  2. CARBOPLATIN. [Suspect]
     Active Substance: CARBOPLATIN
     Route: 031

REACTIONS (1)
  - Choroidal infarction [Unknown]
